FAERS Safety Report 12412660 (Version 1)
Quarter: 2016Q2

REPORT INFORMATION
  Report Type: Spontaneous
  Country: FR (occurrence: FR)
  Receive Date: 20160527
  Receipt Date: 20160527
  Transmission Date: 20160815
  Serious: Yes (Hospitalization, Other)
  Sender: FDA-Public Use
  Company Number: FR-NOVOPROD-493493

PATIENT
  Age: 59 Year
  Sex: Male

DRUGS (5)
  1. NOVORAPID [Suspect]
     Active Substance: INSULIN ASPART
     Indication: TYPE 2 DIABETES MELLITUS
     Dosage: UNK
     Route: 065
     Dates: start: 20160412
  2. CELLCEPT [Suspect]
     Active Substance: MYCOPHENOLATE MOFETIL\MYCOPHENOLATE MOFETIL HYDROCHLORIDE
     Indication: PROPHYLAXIS AGAINST TRANSPLANT REJECTION
     Dosage: 500 MG, QD
     Route: 048
     Dates: start: 201508
  3. LAROXYL [Suspect]
     Active Substance: AMITRIPTYLINE
     Indication: NEURALGIA
     Dosage: UNK
     Route: 042
     Dates: start: 2016
  4. SEROPLEX [Suspect]
     Active Substance: ESCITALOPRAM OXALATE
     Indication: DEPRESSION
     Dosage: 1 DF, QD
     Route: 048
     Dates: start: 2016, end: 20160421
  5. RIVOTRIL [Suspect]
     Active Substance: CLONAZEPAM
     Indication: AGITATION
     Dosage: UNK
     Route: 042
     Dates: start: 20160423, end: 20160424

REACTIONS (1)
  - Myoclonus [Recovering/Resolving]

NARRATIVE: CASE EVENT DATE: 20160423
